FAERS Safety Report 21630495 (Version 1)
Quarter: 2022Q4

REPORT INFORMATION
  Report Type: Report from Study
  Country: US (occurrence: None)
  Receive Date: 20221123
  Receipt Date: 20221123
  Transmission Date: 20230113
  Serious: Yes (Hospitalization)
  Sender: FDA-Public Use
  Company Number: 2022A381762

PATIENT
  Sex: Female

DRUGS (22)
  1. FASENRA [Suspect]
     Active Substance: BENRALIZUMAB
     Indication: Asthma
     Dosage: 30 MG/ML: RX2: INJECT 1 PEN UNDER THE SKIN (SUBCUTANEOUS INJECTION) EVERY 8 WEEKS STARTING ON WE...
     Route: 058
     Dates: start: 20220513
  2. OMEPRAZOLE [Suspect]
     Active Substance: OMEPRAZOLE
     Route: 048
  3. ALBUTEROL [Concomitant]
     Active Substance: ALBUTEROL
     Dosage: 2MG/5ML
  4. ALPRAZOLAM [Concomitant]
     Active Substance: ALPRAZOLAM
  5. AMLODIPINE [Concomitant]
     Active Substance: AMLODIPINE BESYLATE
  6. AZELASTINE [Concomitant]
     Active Substance: AZELASTINE
     Dosage: SPR 0.1%
  7. BENICAR [Concomitant]
     Active Substance: OLMESARTAN MEDOXOMIL
  8. BUSPIRONE [Concomitant]
     Active Substance: BUSPIRONE HYDROCHLORIDE
  9. CALCIUM [Concomitant]
     Active Substance: CALCIUM
  10. CLARITIN [Concomitant]
     Active Substance: LORATADINE
  11. CYCLOBENZAPRINE [Concomitant]
     Active Substance: CYCLOBENZAPRINE
  12. ESTRADIOL [Concomitant]
     Active Substance: ESTRADIOL
  13. LEVOTHYROXINE [Concomitant]
     Active Substance: LEVOTHYROXINE
  14. MELATONIN [Concomitant]
     Active Substance: MELATONIN
  15. MULTIPLE VIT TAB /IRON [Concomitant]
  16. NASACORT [Concomitant]
     Active Substance: TRIAMCINOLONE ACETONIDE
     Dosage: ALR SPR 55MCG/AC
  17. ONDANSETRON [Concomitant]
     Active Substance: ONDANSETRON
     Dosage: ODT
  18. ORALAIR [Concomitant]
     Active Substance: ANTHOXANTHUM ODORATUM POLLEN\DACTYLIS GLOMERATA POLLEN\LOLIUM PERENNE POLLEN\PHLEUM PRATENSE POLLEN\
     Dosage: 300 IR SL TAB
  19. ORALAIR [Concomitant]
     Active Substance: ANTHOXANTHUM ODORATUM POLLEN\DACTYLIS GLOMERATA POLLEN\LOLIUM PERENNE POLLEN\PHLEUM PRATENSE POLLEN\
     Dosage: ADLT SUB 300 IR
  20. TRELEGY ELLIPTA [Concomitant]
     Active Substance: FLUTICASONE FUROATE\UMECLIDINIUM BROMIDE\VILANTEROL TRIFENATATE
  21. HYDROCHLOROTHIAZIDE\TRIAMTERENE [Concomitant]
     Active Substance: HYDROCHLOROTHIAZIDE\TRIAMTERENE
     Dosage: TAB 37.5-25
  22. VITAMIN D [Concomitant]
     Active Substance: VITAMIN D NOS
     Dosage: CAP 1000UNIT

REACTIONS (1)
  - Muscle spasms [Not Recovered/Not Resolved]
